FAERS Safety Report 16498515 (Version 5)
Quarter: 2019Q3

REPORT INFORMATION
  Report Type: Spontaneous
  Country: PL (occurrence: PL)
  Receive Date: 20190629
  Receipt Date: 20190822
  Transmission Date: 20191004
  Serious: Yes (Hospitalization, Other)
  Sender: FDA-Public Use
  Company Number: PL-AUROBINDO-AUR-APL-2019-037337

PATIENT

DRUGS (16)
  1. SERTRALINE [Interacting]
     Active Substance: SERTRALINE HYDROCHLORIDE
     Indication: DEPRESSION
     Dosage: 100 MG MORNINGS, SINCE ONE YEAR  (1 IN THE MORNING)
     Route: 065
  2. HYDROXYZINE [Interacting]
     Active Substance: HYDROXYZINE HYDROCHLORIDE
     Indication: INITIAL INSOMNIA
     Dosage: 25 MILLIGRAM, ONCE A DAY (ONE IN THE EVENING)
     Route: 065
  3. ENALAPRIL MALEATE. [Interacting]
     Active Substance: ENALAPRIL MALEATE
     Indication: HYPERTENSION
     Dosage: 20 MILLIGRAM, ONCE A DAY
     Route: 065
  4. SERTRALINE [Interacting]
     Active Substance: SERTRALINE HYDROCHLORIDE
     Dosage: 100 MILLIGRAM, ONCE A DAY, IN THE MORNING
     Route: 065
  5. FLUOXETINE [Suspect]
     Active Substance: FLUOXETINE HYDROCHLORIDE
     Indication: DEPRESSION
     Dosage: 40 MILLIGRAM, UNK
     Route: 065
  6. HYDROXYZINE [Interacting]
     Active Substance: HYDROXYZINE HYDROCHLORIDE
     Indication: INSOMNIA
  7. CIPROFLOXACIN. [Suspect]
     Active Substance: CIPROFLOXACIN
     Indication: BRONCHITIS
     Dosage: 1000 MILLIGRAM, ONCE A DAY (500 MG, BID)
     Route: 048
  8. OMEPRAZOLE. [Suspect]
     Active Substance: OMEPRAZOLE
     Indication: SPINAL PAIN
     Dosage: 40 MILLIGRAM, ONCE A DAY
     Route: 065
  9. OMEPRAZOLE. [Interacting]
     Active Substance: OMEPRAZOLE
     Indication: BACK PAIN
  10. TRAMADOL. [Suspect]
     Active Substance: TRAMADOL
     Indication: ARTHRALGIA
     Dosage: 300 MILLIGRAM, ONCE A DAY
     Route: 065
  11. CELECOXIB. [Interacting]
     Active Substance: CELECOXIB
     Indication: BACK PAIN
     Dosage: 400 MILLIGRAM, ONCE A DAY
     Route: 065
  12. SERTRALINE [Interacting]
     Active Substance: SERTRALINE HYDROCHLORIDE
     Dosage: 25 MILLIGRAM, UNK
     Route: 065
  13. PARACETAMOL [Suspect]
     Active Substance: ACETAMINOPHEN
     Indication: ARTHRALGIA
     Dosage: 2600 MILLIGRAM, ONCE A DAY
     Route: 065
  14. KETOPROFEN. [Suspect]
     Active Substance: KETOPROFEN
     Indication: PAIN
     Dosage: 900 MILLIGRAM, ONCE A DAY (300 MG, TID)
     Route: 048
  15. INDAPAMIDE. [Interacting]
     Active Substance: INDAPAMIDE
     Indication: HYPERTENSION
     Dosage: 1.5 MILLIGRAM, ONCE A DAY, INDAPAMIDE SR
     Route: 065
  16. TRAZODONE [Suspect]
     Active Substance: TRAZODONE HYDROCHLORIDE
     Indication: INSOMNIA
     Dosage: 75 MILLIGRAM (BEFORE GOING TO SLEEP)
     Route: 065

REACTIONS (10)
  - Dysphagia [Recovered/Resolved]
  - Iron deficiency [Recovered/Resolved]
  - Serotonin syndrome [Unknown]
  - Pain [Recovered/Resolved]
  - Upper gastrointestinal haemorrhage [Unknown]
  - Drug interaction [Recovered/Resolved]
  - Burning mouth syndrome [Recovered/Resolved]
  - Oral discomfort [Recovered/Resolved]
  - Drug ineffective [Unknown]
  - Hypophagia [Recovered/Resolved]
